FAERS Safety Report 4547849-2 (Version None)
Quarter: 2004Q4

REPORT INFORMATION
  Report Type: 
  Country: None (occurrence: None)
  Receive Date: 20041227
  Receipt Date: 20041008
  Transmission Date: 20050328
  Serious: No
  Sender: FDA-Public Use
  Company Number: 04P-163-0277099-00

PATIENT
  Age: 65 Year
  Sex: Female
  Weight: 104.5 kg

DRUGS (13)
  1. HUMIRA [Suspect]
     Indication: RHEUMATOID ARTHRITIS
     Dosage: 40 MG, 1 IN 2 WK, INJECTION
     Dates: start: 20030101
  2. LEVOTHYRXOINE SODIUM [Concomitant]
  3. CALCIUM CARBONATE [Concomitant]
  4. HYDROCHLOROTHIAZIDE [Concomitant]
  5. ALPRAZOLAM [Concomitant]
  6. PULMICORT [Concomitant]
  7. ALBUTEROL [Concomitant]
  8. FLUOROMETHOLONE ACETATE [Concomitant]
  9. RESTASIS [Concomitant]
  10. BUDESONIDE [Concomitant]
  11. LINSEED OIL [Concomitant]
  12. FISH OIL [Concomitant]
  13. TOCOPHEROL CONCENTRATE CAP [Concomitant]

REACTIONS (1)
  - DRUG INEFFECTIVE [None]
